FAERS Safety Report 5868103-2 (Version None)
Quarter: 2008Q3

REPORT INFORMATION
  Report Type: 
  Country: None (occurrence: None)
  Receive Date: 20080902
  Receipt Date: 20080418
  Transmission Date: 20090109
  Serious: No
  Sender: FDA-Public Use
  Company Number: US-ABBOTT-08P-163-0448592-00

PATIENT
  Sex: Female
  Weight: 104.42 kg

DRUGS (7)
  1. DEPAKOTE ER [Suspect]
     Indication: BIPOLAR DISORDER
     Dosage: THREE 250MG TABS IN AM, 2 TABS IN PM
     Route: 048
     Dates: start: 19880101, end: 20071201
  2. DEPAKOTE ER [Suspect]
     Dosage: TWO 250MG TABS IN AM, 2 TABS IN PM
     Route: 048
     Dates: start: 20071201
  3. ENALAPRIL MALEATE [Concomitant]
     Indication: HYPERTENSION
     Route: 048
  4. ATORVASTATIN CALCIUM [Concomitant]
     Indication: BLOOD CHOLESTEROL INCREASED
     Route: 048
  5. LORAZEPAM [Concomitant]
     Indication: INSOMNIA
     Dosage: SMALL DOSE
     Route: 048
  6. RISPERIDONE [Concomitant]
     Indication: BIPOLAR DISORDER
     Dosage: 1/2 IN AM, 1/2 IN PM
     Route: 048
  7. ACETYLSALICYLIC ACID SRT [Concomitant]
     Indication: PROPHYLAXIS
     Dosage: 81 MG DAILY
     Route: 048

REACTIONS (2)
  - DRUG TOXICITY [None]
  - SOMNOLENCE [None]
